FAERS Safety Report 12131261 (Version 1)
Quarter: 2016Q1

REPORT INFORMATION
  Report Type: Spontaneous
  Country: US (occurrence: None)
  Receive Date: 20160229
  Receipt Date: 20160229
  Transmission Date: 20160526
  Serious: Yes (Other)
  Sender: FDA-Public Use
  Company Number: None

PATIENT
  Age: 63 Year
  Sex: Male

DRUGS (1)
  1. TARGRETIN [Suspect]
     Active Substance: BEXAROTENE
     Indication: MYCOSIS FUNGOIDES
     Dosage: 75 NG ORAL ONCE DAILY
     Route: 048
     Dates: start: 20160211

REACTIONS (3)
  - Bowel movement irregularity [None]
  - Urinary retention [None]
  - Dysuria [None]

NARRATIVE: CASE EVENT DATE: 20160226
